FAERS Safety Report 18653582 (Version 8)
Quarter: 2021Q3

REPORT INFORMATION
  Report Type: Report from Study
  Country: US (occurrence: US)
  Receive Date: 20201223
  Receipt Date: 20210920
  Transmission Date: 20211014
  Serious: Yes (Other)
  Sender: FDA-Public Use
  Company Number: US-TAKEDA-US202005399

PATIENT
  Sex: Male

DRUGS (1)
  1. HUMAN NORMAL IMMUNOGLOBULIN; LIQUID [Suspect]
     Active Substance: HUMAN IMMUNOGLOBULIN G
     Indication: HYPOGAMMAGLOBULINAEMIA
     Dosage: UNK
     Route: 042

REACTIONS (21)
  - Night blindness [Unknown]
  - Illness [Unknown]
  - Pain [Unknown]
  - Arthralgia [Unknown]
  - Photopsia [Unknown]
  - Feeling abnormal [Unknown]
  - Pain in extremity [Unknown]
  - Headache [Unknown]
  - Limb injury [Unknown]
  - Tooth disorder [Unknown]
  - Glare [Unknown]
  - Gastroenteritis viral [Unknown]
  - Blood immunoglobulin G decreased [Unknown]
  - Injection site pain [Unknown]
  - Influenza like illness [Unknown]
  - Cataract [Unknown]
  - Malaise [Unknown]
  - Fatigue [Unknown]
  - Back pain [Unknown]
  - Dehydration [Unknown]
  - Sinusitis [Unknown]
